FAERS Safety Report 12835794 (Version 1)
Quarter: 2016Q4

REPORT INFORMATION
  Report Type: Spontaneous
  Country: US (occurrence: US)
  Receive Date: 20161007
  Receipt Date: 20161007
  Transmission Date: 20170207
  Serious: Yes (Hospitalization)
  Sender: FDA-Public Use
  Company Number: None

PATIENT
  Age: 87 Year
  Sex: Male
  Weight: 85 kg

DRUGS (1)
  1. WARFARIN [Suspect]
     Active Substance: WARFARIN
     Indication: ATRIAL FIBRILLATION
     Route: 048
     Dates: start: 20120120, end: 20160907

REACTIONS (6)
  - Haemorrhage [None]
  - Platelet count decreased [None]
  - International normalised ratio increased [None]
  - Subdural haematoma [None]
  - Fall [None]
  - Aphasia [None]

NARRATIVE: CASE EVENT DATE: 20160907
